FAERS Safety Report 19039592 (Version 1)
Quarter: 2021Q1

REPORT INFORMATION
  Report Type: Other
  Country: FR (occurrence: FR)
  Receive Date: 20210322
  Receipt Date: 20210322
  Transmission Date: 20210420
  Serious: Yes (Death)
  Sender: FDA-Public Use
  Company Number: FR-ROCHE-2788202

PATIENT

DRUGS (1)
  1. EMICIZUMAB. [Suspect]
     Active Substance: EMICIZUMAB
     Indication: FACTOR VIII DEFICIENCY
     Route: 065

REACTIONS (7)
  - Thrombosis [Fatal]
  - Haemorrhage intracranial [Fatal]
  - Cardiovascular disorder [Fatal]
  - Neoplasm malignant [Fatal]
  - HIV infection [Fatal]
  - Hepatitis C [Fatal]
  - Infection [Fatal]
